FAERS Safety Report 4476121-4 (Version None)
Quarter: 2004Q3

REPORT INFORMATION
  Report Type: 
  Country: None (occurrence: None)
  Receive Date: 20040923
  Receipt Date: 20040723
  Transmission Date: 20050211
  Serious: No
  Sender: FDA-Public Use
  Company Number: USA040670732

PATIENT
  Age: 72 Year
  Sex: Female

DRUGS (3)
  1. FORTEO [Suspect]
     Indication: OSTEOPOROSIS
     Dates: start: 20040611
  2. ADVAIR DISKUS 100/50 [Concomitant]
  3. MAXAIR [Concomitant]

REACTIONS (2)
  - NON-CARDIAC CHEST PAIN [None]
  - OEDEMA PERIPHERAL [None]
